FAERS Safety Report 4456909-6 (Version None)
Quarter: 2004Q3

REPORT INFORMATION
  Report Type: 
  Country: None (occurrence: None)
  Receive Date: 20040923
  Receipt Date: 20040901
  Transmission Date: 20050211
  Serious: Yes (Other)
  Sender: FDA-Public Use
  Company Number: US-ROCHE-379598

PATIENT
  Age: 25 Year
  Sex: Female

DRUGS (4)
  1. ACCUTANE [Suspect]
     Indication: ACNE
     Route: 048
     Dates: start: 20030918, end: 20040221
  2. ISOTRETINOIN [Suspect]
     Indication: DRUG USE FOR UNKNOWN INDICATION
     Route: 048
     Dates: start: 20040115, end: 20040315
  3. BIRTH CONTROL PILL [Concomitant]
     Indication: CONTRACEPTION
     Route: 048
     Dates: start: 20030915, end: 20040415
  4. ALBUTEROL [Concomitant]

REACTIONS (3)
  - ASTHMA EXERCISE INDUCED [None]
  - DEPRESSION [None]
  - HYPERSENSITIVITY [None]
